FAERS Safety Report 5925650-2 (Version None)
Quarter: 2008Q4

REPORT INFORMATION
  Report Type: 
  Country: None (occurrence: None)
  Receive Date: 20081016
  Receipt Date: 20081006
  Transmission Date: 20090506
  Serious: Yes (Hospitalization, Disabling)
  Sender: FDA-Public Use
  Company Number: GXKR2008GB09529

PATIENT
  Age: 76 Year
  Sex: Male
  Weight: 90 kg

DRUGS (12)
  1. WARFARIN SODIUM [Suspect]
     Dosage: 1 DF, PRN, ORAL
     Route: 048
  2. GOSERELIN (GOSERELIN) [Suspect]
     Indication: PROSTATE CANCER
     Dosage: 10.8 MG, 3/MONTHS, SUBCUTANEOUS
     Route: 058
     Dates: start: 20040325
  3. BENDROFLUMETHIAZIDE (BENDROFLUMETHIAZIDE) [Concomitant]
  4. CITALOPRAM HYDROBROMIDE (CITALOPRAM HYDROCHLORIDE) [Concomitant]
  5. DOXAZOSIN MESILATE (DOXAZOSIN MESILTATE) [Concomitant]
  6. INSULIN DETERMIR (INSULIN DETERMIR) [Concomitant]
  7. NOVORAPID (INSULIN ASPART) [Concomitant]
  8. PARACETAMIL (PARACETAMOL) [Concomitant]
  9. PENICILLIN NOS (PENICIILIN NOS) [Concomitant]
  10. RAMIPRIL [Concomitant]
  11. SIMVASTATIN [Concomitant]
  12. TOLTERODINE TARTRATE [Concomitant]

REACTIONS (4)
  - FALL [None]
  - HUMERUS FRACTURE [None]
  - OSTEOPOROTIC FRACTURE [None]
  - TIBIA FRACTURE [None]
